FAERS Safety Report 20429942 (Version 2)
Quarter: 2022Q2

REPORT INFORMATION
  Report Type: Spontaneous
  Country: US (occurrence: US)
  Receive Date: 20220204
  Receipt Date: 20220413
  Transmission Date: 20220721
  Serious: Yes (Other)
  Sender: FDA-Public Use
  Company Number: US-PFIZER INC-202200121204

PATIENT
  Age: 72 Year
  Sex: Female
  Weight: 39.46 kg

DRUGS (1)
  1. ESTRING [Suspect]
     Active Substance: ESTRADIOL
     Indication: Vulvovaginal dryness
     Dosage: UNK

REACTIONS (5)
  - Autoimmune disorder [Unknown]
  - Urticaria [Unknown]
  - Poor quality product administered [Unknown]
  - Product packaging issue [Unknown]
  - Suspected counterfeit product [Unknown]
